FAERS Safety Report 8496716-0 (Version None)
Quarter: 2012Q2

REPORT INFORMATION
  Report Type: 
  Country: None (occurrence: None)
  Receive Date: 20120629
  Receipt Date: 20120619
  Transmission Date: 20120825
  Serious: Yes (Other)
  Sender: FDA-Public Use
  Company Number: DKLU1082531

PATIENT
  Sex: Female

DRUGS (1)
  1. ELSPAR [Suspect]
     Indication: EPSTEIN-BARR VIRUS INFECTION
     Dosage: 6000 U/M2 EVERY OTHER DAY (7 DOSES)

REACTIONS (1)
  - DYSTONIA [None]
